FAERS Safety Report 11589075 (Version 1)
Quarter: 2015Q4

REPORT INFORMATION
  Report Type: Spontaneous
  Country: US (occurrence: None)
  Receive Date: 20151001
  Receipt Date: 20151001
  Transmission Date: 20160304
  Serious: Yes (Hospitalization)
  Sender: FDA-Public Use
  Company Number: None

PATIENT
  Age: 73 Year
  Sex: Male
  Weight: 69.8 kg

DRUGS (2)
  1. AVASTIN [Suspect]
     Active Substance: BEVACIZUMAB
     Route: 042
     Dates: start: 20150426
  2. MINOCYCLINE\MINOCYCLINE HYDROCHLORIDE [Suspect]
     Active Substance: MINOCYCLINE\MINOCYCLINE HYDROCHLORIDE
     Indication: GLIOBLASTOMA
     Route: 048
     Dates: start: 20150527, end: 20150930

REACTIONS (4)
  - Fall [None]
  - Confusional state [None]
  - Decreased appetite [None]
  - Asthenia [None]

NARRATIVE: CASE EVENT DATE: 20150929
